FAERS Safety Report 7357328-5 (Version None)
Quarter: 2011Q1

REPORT INFORMATION
  Report Type: 
  Country: None (occurrence: None)
  Receive Date: 20110311
  Receipt Date: 20110311
  Transmission Date: 20110831
  Serious: Yes (Hospitalization)
  Sender: FDA-Public Use
  Company Number: None

PATIENT
  Sex: Male
  Weight: 138.5 kg

DRUGS (4)
  1. WARFARIN SODIUM [Concomitant]
  2. IRINOTECAN HCL [Suspect]
     Indication: OESOPHAGEAL CANCER METASTATIC
     Dosage: CAMPTOSAR - 65MG/M2 100MG WEEKLY 4 OF 6 IV
     Route: 042
     Dates: start: 20101222, end: 20110216
  3. CISPLATIN [Concomitant]
  4. LOVENOX [Concomitant]

REACTIONS (1)
  - PANCREATITIS ACUTE [None]
